FAERS Safety Report 6433620-3 (Version None)
Quarter: 2009Q4

REPORT INFORMATION
  Report Type: 
  Country: None (occurrence: None)
  Receive Date: 20091110
  Receipt Date: 20091104
  Transmission Date: 20100525
  Serious: Yes (Death, Hospitalization)
  Sender: FDA-Public Use
  Company Number: JP-JNJFOC-20091100492

PATIENT
  Age: 39 Year
  Sex: Male

DRUGS (8)
  1. TOPINA [Suspect]
     Indication: EPILEPSY
     Route: 048
     Dates: start: 20081203
  2. HYDANTOL [Concomitant]
     Indication: EPILEPSY
     Route: 048
  3. HYDANTOL F [Concomitant]
     Indication: EPILEPSY
     Route: 048
  4. TEGRETOL [Concomitant]
     Indication: EPILEPSY
     Route: 048
  5. GABAPEN [Concomitant]
     Indication: EPILEPSY
     Route: 048
  6. MAGLAX [Concomitant]
     Route: 048
  7. FOLIAMIN [Concomitant]
     Route: 048
  8. CLARITIN [Concomitant]
     Route: 048

REACTIONS (3)
  - DISSEMINATED INTRAVASCULAR COAGULATION [None]
  - INTESTINAL OBSTRUCTION [None]
  - PNEUMONIA ASPIRATION [None]
